FAERS Safety Report 25247119 (Version 2)
Quarter: 2025Q3

REPORT INFORMATION
  Report Type: Report from Study
  Country: US (occurrence: US)
  Receive Date: 20250428
  Receipt Date: 20250919
  Transmission Date: 20251021
  Serious: Yes (Hospitalization, Other)
  Sender: UCB
  Company Number: US-UCBSA-2024060157

PATIENT
  Sex: Male
  Weight: 27 kg

DRUGS (9)
  1. FINTEPLA [Suspect]
     Active Substance: FENFLURAMINE
     Indication: Lennox-Gastaut syndrome
     Dosage: 4.5 MILLILITER, 2X/DAY (BID)
     Dates: start: 20240502
  2. FINTEPLA [Suspect]
     Active Substance: FENFLURAMINE
     Dosage: 4.5 MILLILITER, 2X/DAY (BID)
     Dates: start: 2024
  3. FINTEPLA [Suspect]
     Active Substance: FENFLURAMINE
     Dosage: 4.5 MILLILITER, 2X/DAY (BID)
     Dates: start: 2024
  4. FINTEPLA [Suspect]
     Active Substance: FENFLURAMINE
     Dosage: 4.5 MILLILITER, 2X/DAY (BID)
  5. FINTEPLA [Suspect]
     Active Substance: FENFLURAMINE
  6. DEPAKOTE [Concomitant]
     Active Substance: DIVALPROEX SODIUM
     Indication: Seizure
     Dosage: 7.5 MILLILITER, 2X/DAY (BID)
  7. DEPAKOTE [Concomitant]
     Active Substance: DIVALPROEX SODIUM
  8. ONFI [Concomitant]
     Active Substance: CLOBAZAM
     Indication: Seizure
  9. EPIDIOLEX [Concomitant]
     Active Substance: CANNABIDIOL
     Indication: Seizure
     Dosage: 2.8 MILLILITER, 2X/DAY (BID)

REACTIONS (10)
  - Lethargy [Not Recovered/Not Resolved]
  - Seizure [Recovering/Resolving]
  - Decreased appetite [Recovered/Resolved]
  - Blood glucose decreased [Not Recovered/Not Resolved]
  - Diabetic coma [Recovered/Resolved]
  - Aortic dilatation [Unknown]
  - Influenza [Not Recovered/Not Resolved]
  - Gastroenteritis viral [Not Recovered/Not Resolved]
  - Weight decreased [Not Recovered/Not Resolved]
  - Hormone level abnormal [Not Recovered/Not Resolved]

NARRATIVE: CASE EVENT DATE: 20240101
